FAERS Safety Report 15477543 (Version 1)
Quarter: 2018Q4

REPORT INFORMATION
  Report Type: Report from Study
  Country: CO (occurrence: CO)
  Receive Date: 20181009
  Receipt Date: 20181009
  Transmission Date: 20190205
  Serious: Yes (Death, Other)
  Sender: FDA-Public Use
  Company Number: CO-ASTELLAS-2018US043585

PATIENT
  Age: 88 Year
  Sex: Male

DRUGS (1)
  1. ENZALUTAMIDE [Suspect]
     Active Substance: ENZALUTAMIDE
     Indication: HORMONE-REFRACTORY PROSTATE CANCER
     Route: 048
     Dates: start: 20180904

REACTIONS (5)
  - Asthenia [Fatal]
  - Limb discomfort [Fatal]
  - Cardiac arrest [Fatal]
  - Death [Fatal]
  - Hypotension [Fatal]

NARRATIVE: CASE EVENT DATE: 20181001
